FAERS Safety Report 21950182 (Version 7)
Quarter: 2023Q1

REPORT INFORMATION
  Report Type: Spontaneous
  Country: GB (occurrence: GB)
  Receive Date: 20230203
  Receipt Date: 20230327
  Transmission Date: 20230418
  Serious: Yes (Hospitalization)
  Sender: FDA-Public Use
  Company Number: GB-MYLANLABS-2023M1005927

PATIENT
  Age: 57 Year
  Sex: Male

DRUGS (5)
  1. CLOZARIL [Suspect]
     Active Substance: CLOZAPINE
     Indication: Schizophrenia
     Dosage: UNK
     Route: 048
     Dates: start: 20070227, end: 20230114
  2. CLOZARIL [Suspect]
     Active Substance: CLOZAPINE
     Dosage: UNK
     Route: 048
     Dates: start: 20230131
  3. AMISULPRIDE [Concomitant]
     Active Substance: AMISULPRIDE
     Dosage: 150 MILLIGRAM, QD , (MANE)
     Route: 048
  4. NITROFURANTOIN [Concomitant]
     Active Substance: NITROFURANTOIN
     Indication: Urinary tract infection
     Dosage: 100 MILLIGRAM, BID, (SHORT COURSE)
     Route: 065
     Dates: end: 20230126
  5. LORAZEPAM [Concomitant]
     Active Substance: LORAZEPAM
     Dosage: 1 MILLIGRAM, QOD (PRN, START DATE: FROM MID JAN)
     Route: 065

REACTIONS (14)
  - Mental status changes [Not Recovered/Not Resolved]
  - Treatment noncompliance [Recovered/Resolved]
  - Malaise [Recovering/Resolving]
  - Full blood count abnormal [Unknown]
  - Psychotic disorder [Recovering/Resolving]
  - Electrocardiogram abnormal [Unknown]
  - Haemoglobin decreased [Unknown]
  - Red blood cell count decreased [Recovering/Resolving]
  - Haematocrit decreased [Recovering/Resolving]
  - Mean cell haemoglobin increased [Not Recovered/Not Resolved]
  - Monocyte count increased [Unknown]
  - Blood urea increased [Unknown]
  - Protein total decreased [Unknown]
  - Basophil count increased [Unknown]

NARRATIVE: CASE EVENT DATE: 20230126
